FAERS Safety Report 10155071 (Version 1)
Quarter: 2014Q2

REPORT INFORMATION
  Report Type: Spontaneous
  Country: US (occurrence: US)
  Receive Date: 20140506
  Receipt Date: 20140506
  Transmission Date: 20141212
  Serious: Yes (Other)
  Sender: FDA-Public Use
  Company Number: US-B.I. PHARMACEUTICALS,INC./RIDGEFIELD-2014-BI-19691GD

PATIENT
  Age: 50 Year
  Sex: Male

DRUGS (4)
  1. CLONIDINE [Suspect]
     Indication: HYPERTENSION
     Dosage: 0.3 MG
     Route: 065
  2. CARVEDILOL [Suspect]
     Indication: HYPERTENSION
     Dosage: 50 MG
     Route: 065
  3. LISINOPRIL [Suspect]
     Indication: HYPERTENSION
     Dosage: 40 MG
     Route: 065
  4. NORVASC [Suspect]
     Indication: HYPERTENSION
     Dosage: 10 MG
     Route: 065

REACTIONS (3)
  - Hypotension [Unknown]
  - Bradycardia [Recovered/Resolved]
  - Hyperkalaemia [Recovered/Resolved]
